FAERS Safety Report 7433360-8 (Version None)
Quarter: 2011Q2

REPORT INFORMATION
  Report Type: 
  Country: None (occurrence: None)
  Receive Date: 20110422
  Receipt Date: 20110329
  Transmission Date: 20111010
  Serious: Yes (Other)
  Sender: FDA-Public Use
  Company Number: US-GENZYME-FABR-1001850

PATIENT
  Sex: Female
  Weight: 105 kg

DRUGS (6)
  1. FABRAZYME [Suspect]
     Indication: FABRY'S DISEASE
     Dosage: 75 MG, Q2W
     Route: 042
  2. FABRAZYME [Suspect]
     Dosage: 105 MG, Q2W
     Route: 042
     Dates: start: 20060220, end: 20090901
  3. FABRAZYME [Suspect]
     Dosage: 0.5 MG/KG, Q3W
     Route: 042
     Dates: start: 20090901
  4. FABRAZYME [Suspect]
     Dosage: 35 MG, Q4W
     Route: 042
  5. TOPROL-XL [Concomitant]
     Indication: HYPERTENSION
     Dosage: UNK
     Dates: start: 20050201
  6. LISINOPRIL [Concomitant]
     Indication: HYPERTENSION
     Dosage: UNK
     Dates: start: 20050201

REACTIONS (1)
  - CARDIOMYOPATHY [None]
